FAERS Safety Report 8516271-6 (Version None)
Quarter: 2012Q3

REPORT INFORMATION
  Report Type: 
  Country: None (occurrence: None)
  Receive Date: 20120717
  Receipt Date: 20120702
  Transmission Date: 20120928
  Serious: Yes (Other)
  Sender: FDA-Public Use
  Company Number: CHPA2012US014939

PATIENT
  Age: 82 Year
  Sex: Female

DRUGS (5)
  1. 4 WAY SALINE MOISTURIZING MIST [Suspect]
     Indication: SINUS DISORDER
     Dosage: UNK, QD
     Route: 045
     Dates: start: 20120101, end: 20120101
  2. METOPROLOL TARTRATE [Concomitant]
     Indication: HYPERTENSION
     Dosage: UNK, QD
     Route: 048
  3. ATIVAN [Concomitant]
     Indication: INSOMNIA
     Dosage: 1/2 DOSE, QPM
     Route: 048
  4. LOSARTAN POTASSIUM [Concomitant]
     Indication: HYPERTENSION
     Dosage: UNK, QD
     Route: 048
  5. NORVASC [Concomitant]
     Indication: HYPERTENSION
     Dosage: UNK, QD
     Route: 048

REACTIONS (4)
  - ROTATOR CUFF SYNDROME [None]
  - INCORRECT DRUG ADMINISTRATION DURATION [None]
  - OFF LABEL USE [None]
  - WRONG TECHNIQUE IN DRUG USAGE PROCESS [None]
